FAERS Safety Report 7291354-X (Version None)
Quarter: 2011Q1

REPORT INFORMATION
  Report Type: 
  Country: None (occurrence: None)
  Receive Date: 20110214
  Receipt Date: 20110210
  Transmission Date: 20110831
  Serious: Yes (Life-Threatening)
  Sender: FDA-Public Use
  Company Number: A0912978A

PATIENT
  Age: 22 Year
  Sex: Male

DRUGS (2)
  1. ZANAMIVIR [Suspect]
     Dosage: 600MG TWICE PER DAY
     Route: 042
     Dates: start: 20110203
  2. ARIXTRA [Concomitant]

REACTIONS (1)
  - PULMONARY EMBOLISM [None]
